FAERS Safety Report 8136985-X (Version None)
Quarter: 2012Q1

REPORT INFORMATION
  Report Type: 
  Country: None (occurrence: None)
  Receive Date: 20120214
  Receipt Date: 20120210
  Transmission Date: 20120608
  Serious: Yes (Life-Threatening, Hospitalization)
  Sender: FDA-Public Use
  Company Number: IT-ASTRAZENECA-2011SE77947

PATIENT
  Age: 57 Year
  Sex: Female

DRUGS (8)
  1. SEROQUEL XR [Suspect]
     Indication: SUICIDAL IDEATION
     Route: 048
     Dates: start: 20090101, end: 20111219
  2. SEROQUEL XR [Suspect]
     Indication: ACUTE PSYCHOSIS
     Route: 048
     Dates: start: 20090101, end: 20111219
  3. PROMAZINE HYDROCHLORIDE [Concomitant]
     Route: 048
  4. SEROQUEL XR [Suspect]
     Route: 048
  5. LEXOTAN [Concomitant]
     Route: 048
  6. ABILIFY [Concomitant]
     Route: 048
  7. ENTUNIM [Concomitant]
  8. SEROQUEL XR [Suspect]
     Route: 048

REACTIONS (7)
  - SUICIDE ATTEMPT [None]
  - DISORIENTATION [None]
  - INTENTIONAL OVERDOSE [None]
  - FEELING JITTERY [None]
  - AGITATION [None]
  - DELIRIUM [None]
  - CONFUSIONAL STATE [None]
